FAERS Safety Report 4773703-7 (Version None)
Quarter: 2005Q3

REPORT INFORMATION
  Report Type: 
  Country: None (occurrence: None)
  Receive Date: 20050919
  Receipt Date: 20050906
  Transmission Date: 20060218
  Serious: Yes (Hospitalization, Other)
  Sender: FDA-Public Use
  Company Number: HQWYE267607SEP05

PATIENT
  Age: 27 Year
  Sex: Female

DRUGS (12)
  1. VENLAFAXINE XR [Suspect]
     Indication: DEPRESSION
     Dosage: SEE IMAGE
     Route: 048
     Dates: start: 20050614, end: 20050621
  2. VENLAFAXINE XR [Suspect]
     Indication: DEPRESSION
     Dosage: SEE IMAGE
     Route: 048
     Dates: start: 20050621, end: 20050628
  3. VENLAFAXINE XR [Suspect]
     Indication: DEPRESSION
     Dosage: SEE IMAGE
     Route: 048
     Dates: start: 20050628, end: 20050906
  4. CEFPIRAMIDE SODIUM [Suspect]
     Indication: TONSILLITIS
     Dosage: 600 MG DAILY, DRIP INFUSION, INTRAVENOUS
     Route: 042
     Dates: start: 20050831, end: 20050831
  5. CODEINE PHOSPHATE (CODEINE PHOSPHATE) [Suspect]
     Indication: NASOPHARYNGITIS
     Dosage: 3% 3G
     Route: 048
     Dates: start: 20050827, end: 20050828
  6. CLINDAMYCIN HCL [Suspect]
     Indication: TONSILLITIS
     Dosage: 600 MG DAILY, DRIP INFUSION, INTRAVENOUS
     Route: 042
     Dates: start: 20050831, end: 20050831
  7. MELACTONE (SPIRONOLACTONE) [Suspect]
     Indication: NASOPHARYNGITIS
     Dosage: 300 MG 1 X PER 1 DAY, ORAL
     Route: 048
     Dates: start: 20050824, end: 20050825
  8. MUCOSOLVAN (AMBROXOL HYDROCHLORIDE) [Suspect]
     Indication: NASOPHARYNGITIS
     Dosage: 48 MG 1 X PER 1 DAY, ORAL
     Route: 048
     Dates: start: 20050827, end: 20050828
  9. DEXCHLORPHENIRAMINE MALEATE [Suspect]
     Indication: NASOPHARYNGITIS
     Dosage: 6 MG 1 X PER 1 DAY, ORAL
     Route: 048
     Dates: start: 20050824, end: 20050825
  10. DEXCHLORPHENIRAMINE MALEATE [Suspect]
     Dosage: 6 MG 1 X PER 1 DAY, ORAL
     Route: 048
     Dates: start: 20050827, end: 20050828
  11. AMOXICILLIN TRIHYDRATE [Suspect]
     Indication: NASOPHARYNGITIS
     Dosage: 750 MG 1 X PER 1 DAY, ORAL
     Route: 048
     Dates: start: 20050827, end: 20050828
  12. SLO-BID [Suspect]
     Indication: NASOPHARYNGITIS
     Dosage: 100 MG 1 X PER 1 DAY, ORAL
     Route: 048
     Dates: start: 20050827, end: 20050828

REACTIONS (3)
  - ACUTE TONSILLITIS [None]
  - DRUG ERUPTION [None]
  - DRUG INTERACTION [None]
